FAERS Safety Report 8446403-X (Version None)
Quarter: 2012Q2

REPORT INFORMATION
  Report Type: 
  Country: None (occurrence: None)
  Receive Date: 20120618
  Receipt Date: 20120207
  Transmission Date: 20120825
  Serious: No
  Sender: FDA-Public Use
  Company Number: US-TEVA-321757USA

PATIENT
  Sex: Female
  Weight: 127.12 kg

DRUGS (6)
  1. MORPHINE SULFATE [Concomitant]
     Indication: ARTHRALGIA
     Dosage: QD
     Route: 048
     Dates: start: 20090101
  2. DEXILANT [Concomitant]
     Indication: GASTROOESOPHAGEAL REFLUX DISEASE
     Dosage: QD
     Route: 048
  3. FENTANYL [Suspect]
     Indication: ARTHRALGIA
     Dosage: 3-4 LOZENGES DAILY
     Route: 002
     Dates: start: 19990101
  4. PREDNISONE [Concomitant]
     Indication: RHEUMATOID ARTHRITIS
     Dosage: QD
     Route: 048
  5. ATENOLOL [Concomitant]
     Indication: MIGRAINE
     Dosage: QD
     Route: 048
  6. DULOXETINE HYDROCHLORIDE [Concomitant]
     Indication: NEURALGIA
     Dosage: 120 MILLIGRAM;
     Route: 048

REACTIONS (2)
  - AMNESIA [None]
  - CONTUSION [None]
